FAERS Safety Report 7194807-8 (Version None)
Quarter: 2010Q4

REPORT INFORMATION
  Report Type: 
  Country: None (occurrence: None)
  Receive Date: 20101223
  Receipt Date: 20101213
  Transmission Date: 20110411
  Serious: Yes (Hospitalization, Other)
  Sender: FDA-Public Use
  Company Number: US-ELI_LILLY_AND_COMPANY-US201010004949

PATIENT
  Sex: Female

DRUGS (12)
  1. FORTEO [Suspect]
  2. CALCIUM [Concomitant]
     Dosage: UNK, UNKNOWN
     Route: 065
  3. VITAMIN D [Concomitant]
     Dosage: UNK, UNKNOWN
     Route: 065
  4. HYDROCODONE BITARTRATE [Concomitant]
     Dosage: UNK, UNKNOWN
     Route: 065
  5. MOBIC [Concomitant]
     Dosage: UNK, UNKNOWN
     Route: 065
  6. VOLTAREN /SCH/ [Concomitant]
     Dosage: UNK, UNKNOWN
     Route: 065
  7. FISH OIL [Concomitant]
     Dosage: UNK, UNKNOWN
     Route: 065
  8. ASPIRIN [Concomitant]
     Dosage: UNK, UNKNOWN
     Route: 065
  9. PRILOSEC [Concomitant]
     Dosage: UNK, UNKNOWN
     Route: 065
  10. LIPITOR [Concomitant]
     Dosage: UNK, UNKNOWN
     Route: 065
  11. SLOW-FE [Concomitant]
     Dosage: UNK, UNKNOWN
     Route: 065
  12. SLEEP-EZE D [Concomitant]
     Dosage: UNK, UNKNOWN
     Route: 065

REACTIONS (3)
  - HYPERCALCAEMIA [None]
  - RENAL FAILURE ACUTE [None]
  - VASOCONSTRICTION [None]
